FAERS Safety Report 4882247-3 (Version None)
Quarter: 2006Q1

REPORT INFORMATION
  Report Type: 
  Country: None (occurrence: None)
  Receive Date: 20060117
  Receipt Date: 20060104
  Transmission Date: 20060701
  Serious: Yes (Disabling)
  Sender: FDA-Public Use
  Company Number: FI-AVENTIS-200610161GDDC

PATIENT
  Age: 32 Year
  Sex: Female

DRUGS (2)
  1. KETEK [Suspect]
     Indication: SINUSITIS
     Route: 048
     Dates: start: 20051228, end: 20051229
  2. FLIXONASE [Concomitant]
     Dosage: DOSE: UNK

REACTIONS (3)
  - EYE PAIN [None]
  - SINUSITIS [None]
  - VISUAL DISTURBANCE [None]
